FAERS Safety Report 13020472 (Version 4)
Quarter: 2017Q1

REPORT INFORMATION
  Report Type: Report from Study
  Country: US (occurrence: US)
  Receive Date: 20161212
  Receipt Date: 20170320
  Transmission Date: 20170428
  Serious: Yes (Hospitalization)
  Sender: FDA-Public Use
  Company Number: US-ACTELION-A-NJ2016-146613

PATIENT
  Age: 53 Year
  Sex: Female
  Weight: 59.41 kg

DRUGS (3)
  1. VELETRI [Suspect]
     Active Substance: EPOPROSTENOL
     Indication: PULMONARY ARTERIAL HYPERTENSION
     Dosage: 12.1 NG/KG, PER MIN
     Route: 042
     Dates: start: 20151014
  2. OPSUMIT [Suspect]
     Active Substance: MACITENTAN
     Indication: PULMONARY ARTERIAL HYPERTENSION
     Dosage: 10 MG, QD
     Route: 048
     Dates: start: 20160816
  3. SILDENAFIL CITRATE. [Concomitant]
     Active Substance: SILDENAFIL CITRATE

REACTIONS (14)
  - Cellulitis [Unknown]
  - Hyperhidrosis [Unknown]
  - Feeling hot [Unknown]
  - Erythema [Unknown]
  - Catheter site discharge [Unknown]
  - Dyspnoea [Unknown]
  - Device dislocation [Recovered/Resolved]
  - Catheter site injury [Unknown]
  - Catheter site inflammation [Unknown]
  - Catheter site pain [Unknown]
  - Catheter site infection [Unknown]
  - Catheter placement [Unknown]
  - Migraine [Unknown]
  - Palpitations [Unknown]

NARRATIVE: CASE EVENT DATE: 20161211
